FAERS Safety Report 23494474 (Version 1)
Quarter: 2024Q1

REPORT INFORMATION
  Report Type: Spontaneous
  Country: US (occurrence: US)
  Receive Date: 20240207
  Receipt Date: 20240207
  Transmission Date: 20240409
  Serious: No
  Sender: FDA-Public Use
  Company Number: US-BIOGEN-2022BI01112939

PATIENT
  Age: 53 Year
  Sex: Female

DRUGS (9)
  1. TYSABRI [Suspect]
     Active Substance: NATALIZUMAB
     Indication: Multiple sclerosis
     Route: 050
     Dates: start: 20210408, end: 20220831
  2. TYSABRI [Suspect]
     Active Substance: NATALIZUMAB
     Route: 050
     Dates: start: 20190304, end: 20191210
  3. METOPROLOL [Concomitant]
     Active Substance: METOPROLOL
     Route: 050
  4. LOSARTAN [Concomitant]
     Active Substance: LOSARTAN
     Route: 050
  5. TRESIBA [Concomitant]
     Active Substance: INSULIN DEGLUDEC
     Route: 050
  6. KERENDIA [Concomitant]
     Active Substance: FINERENONE
     Route: 050
  7. PREGABALIN [Concomitant]
     Active Substance: PREGABALIN
     Route: 050
  8. VITAMIN D [Concomitant]
     Active Substance: VITAMIN D NOS
     Route: 050
  9. PREGABALIN [Concomitant]
     Active Substance: PREGABALIN
     Route: 050

REACTIONS (3)
  - Rash pruritic [Unknown]
  - Urticaria [Recovered/Resolved]
  - Muscle spasms [Recovered/Resolved]

NARRATIVE: CASE EVENT DATE: 20210601
